FAERS Safety Report 15996552 (Version 4)
Quarter: 2020Q1

REPORT INFORMATION
  Report Type: Spontaneous
  Country: US (occurrence: US)
  Receive Date: 20190222
  Receipt Date: 20200331
  Transmission Date: 20200409
  Serious: Yes (Other)
  Sender: FDA-Public Use
  Company Number: PHEH2019US007260

PATIENT
  Sex: Female

DRUGS (1)
  1. TASIGNA [Suspect]
     Active Substance: NILOTINIB
     Indication: CHRONIC MYELOID LEUKAEMIA
     Dosage: 300 MG, BID
     Route: 048
     Dates: start: 201209, end: 201701

REACTIONS (30)
  - Oropharyngeal pain [Unknown]
  - Pain [Unknown]
  - Diabetes mellitus [Unknown]
  - Anaemia [Unknown]
  - Arteriosclerosis [Unknown]
  - Myocardial ischaemia [Unknown]
  - Adnexa uteri mass [Unknown]
  - Diverticulum [Unknown]
  - Haemorrhoids [Unknown]
  - Emotional distress [Unknown]
  - Hypercholesterolaemia [Unknown]
  - Hiatus hernia [Unknown]
  - Osteoarthritis [Unknown]
  - Vitamin D deficiency [Unknown]
  - Central pain syndrome [Unknown]
  - Fall [Unknown]
  - Dysphagia [Unknown]
  - Diarrhoea [Unknown]
  - Micturition urgency [Unknown]
  - Fatigue [Unknown]
  - Carotid artery thrombosis [Unknown]
  - Confusional state [Unknown]
  - Peptic ulcer haemorrhage [Unknown]
  - Cerebrovascular accident [Unknown]
  - Muscular weakness [Unknown]
  - Aphasia [Unknown]
  - Injury [Unknown]
  - Anxiety [Unknown]
  - Retinal detachment [Unknown]
  - Depression [Unknown]
